FAERS Safety Report 14569498 (Version 1)
Quarter: 2018Q1

REPORT INFORMATION
  Report Type: Spontaneous
  Country: US (occurrence: US)
  Receive Date: 20180224
  Receipt Date: 20180224
  Transmission Date: 20180509
  Serious: No
  Sender: FDA-Public Use
  Company Number: US-SHIRE-US201735872

PATIENT
  Age: 59 Year
  Sex: Male

DRUGS (2)
  1. XIIDRA [Suspect]
     Active Substance: LIFITEGRAST
     Indication: VISION BLURRED
     Dosage: UNK UNK, 2X/DAY:BID FOR ABOUT 4 WEEKS IN BOTH EYES
     Route: 065
     Dates: start: 20171126, end: 20171218
  2. XIIDRA [Suspect]
     Active Substance: LIFITEGRAST
     Indication: DRY EYE
     Dosage: UNK UNK, 2X/DAY:BID FOR ABOUT 4 WEEKS IN BOTH EYES
     Route: 065
     Dates: start: 20171126, end: 20171218

REACTIONS (4)
  - Condition aggravated [Unknown]
  - Instillation site reaction [Unknown]
  - Therapy non-responder [Unknown]
  - Vision blurred [Unknown]

NARRATIVE: CASE EVENT DATE: 20171126
